FAERS Safety Report 6460214-6 (Version None)
Quarter: 2009Q4

REPORT INFORMATION
  Report Type: 
  Country: None (occurrence: None)
  Receive Date: 20091130
  Receipt Date: 20091120
  Transmission Date: 20100525
  Serious: Yes (Hospitalization)
  Sender: FDA-Public Use
  Company Number: DE-RANBAXY-2009RR-22655

PATIENT
  Age: 79 Year
  Sex: Male

DRUGS (8)
  1. CAPTOPRIL [Suspect]
     Indication: HYPERTENSION
     Dosage: 25 MG, QD
     Route: 048
  2. FALICARD ^DRESDEN^ [Suspect]
     Indication: HYPERTENSION
     Dosage: 240 MG, QD
     Route: 048
  3. FUROSEMIDE [Suspect]
     Indication: RENAL IMPAIRMENT
     Dosage: 40 MG, QD
     Route: 048
  4. RAMIPRIL [Suspect]
     Indication: RENAL IMPAIRMENT
     Dosage: 2.5 MG, QD
     Route: 048
  5. TEOPHYLLINE [Suspect]
     Indication: CHRONIC OBSTRUCTIVE PULMONARY DISEASE
     Dosage: 400 MG, BID
     Route: 048
     Dates: end: 20090119
  6. XIPAMIDE [Suspect]
     Indication: HYPERTENSION
     Dosage: 20 MG, QD
     Route: 048
  7. DOMPERIDONE [Concomitant]
     Indication: GASTRITIS
     Dosage: 10 MG, TID
     Route: 048
  8. PANTOZOL [Concomitant]
     Indication: GASTRITIS
     Dosage: 40 MG, BID
     Route: 048
     Dates: start: 20061201

REACTIONS (3)
  - HYPOTENSION [None]
  - OVERDOSE [None]
  - TACHYCARDIA [None]
